FAERS Safety Report 8142640-2 (Version None)
Quarter: 2012Q1

REPORT INFORMATION
  Report Type: 
  Country: None (occurrence: None)
  Receive Date: 20120216
  Receipt Date: 20120207
  Transmission Date: 20120608
  Serious: Yes (Hospitalization)
  Sender: FDA-Public Use
  Company Number: JP-ASTRAZENECA-2012SE09270

PATIENT
  Age: 62 Year
  Sex: Female

DRUGS (1)
  1. ARIMIDEX [Suspect]
     Indication: POSTOPERATIVE CARE
     Route: 048

REACTIONS (1)
  - DIABETES MELLITUS [None]
